FAERS Safety Report 6354748-2 (Version None)
Quarter: 2009Q3

REPORT INFORMATION
  Report Type: 
  Country: None (occurrence: None)
  Receive Date: 20090914
  Receipt Date: 20090908
  Transmission Date: 20100115
  Serious: Yes (Death, Hospitalization, Other)
  Sender: FDA-Public Use
  Company Number: NL-CELGENEUS-114-C5013-09040608

PATIENT
  Sex: Male

DRUGS (7)
  1. CC-5013 [Suspect]
     Indication: MYELODYSPLASTIC SYNDROME
     Route: 048
     Dates: start: 20070507
  2. CC-5013 [Suspect]
     Route: 048
     Dates: start: 20090320
  3. QUINAPRIL [Concomitant]
     Indication: PROPHYLAXIS
     Route: 048
     Dates: start: 20080925, end: 20090411
  4. ASCAL [Concomitant]
     Route: 048
     Dates: start: 19971101, end: 20090411
  5. LIPITOR [Concomitant]
     Route: 048
     Dates: start: 20070413, end: 20090411
  6. METOPROLOL TARTRATE [Concomitant]
     Indication: ANGINA PECTORIS
     Route: 048
     Dates: start: 20090111, end: 20090411
  7. ISORDIL [Concomitant]
     Indication: ANGINA PECTORIS
     Route: 060
     Dates: start: 19971116, end: 20090411

REACTIONS (3)
  - ACUTE MYOCARDIAL INFARCTION [None]
  - CONFUSIONAL STATE [None]
  - PYREXIA [None]
